FAERS Safety Report 8823793 (Version 1)
Quarter: 2012Q4

REPORT INFORMATION
  Report Type: 
  Country: US (occurrence: US)
  Receive Date: 20121003
  Receipt Date: 20121003
  Transmission Date: 20130627
  Serious: Yes (Hospitalization, Disabling, Other)
  Sender: FDA-Public Use
  Company Number: US-009507513-1012USA03789

PATIENT

DRUGS (2)
  1. FOSAMAX [Suspect]
     Indication: OSTEOPENIA
     Dosage: 70 mg, QW
     Route: 048
     Dates: start: 200604, end: 201005
  2. FOSAMAX PLUS D [Suspect]
     Indication: OSTEOPENIA
     Dosage: 70 mg, QW
     Route: 048
     Dates: start: 200604, end: 201005

REACTIONS (35)
  - Breast cancer stage I [Recovered/Resolved]
  - Type 2 diabetes mellitus [Unknown]
  - Adverse event [Unknown]
  - Paget^s disease of nipple [Unknown]
  - Pancytopenia [Unknown]
  - Osteonecrosis [Unknown]
  - Osteonecrosis of jaw [Unknown]
  - Gingival disorder [Unknown]
  - Tooth loss [Unknown]
  - Bone loss [Unknown]
  - Jaw disorder [Unknown]
  - Haemorrhage [Unknown]
  - Ovarian cyst [Unknown]
  - Ovarian cyst [Unknown]
  - Adverse event [Unknown]
  - Hypertension [Unknown]
  - Necrosis [Not Recovered/Not Resolved]
  - Renal disorder [Unknown]
  - Pain [Unknown]
  - Blood cholesterol increased [Unknown]
  - Tooth disorder [Unknown]
  - Temporomandibular joint syndrome [Unknown]
  - Stomatitis [Unknown]
  - Atelectasis [Unknown]
  - Pulmonary fibrosis [Unknown]
  - Chest X-ray abnormal [Unknown]
  - Dyspnoea [Unknown]
  - Ovarian cyst [Unknown]
  - Thyroid neoplasm [Unknown]
  - Renal cyst [Unknown]
  - Bone scan abnormal [Unknown]
  - Eye infection [Unknown]
  - Hidradenitis [Unknown]
  - Dental caries [Unknown]
  - Drug hypersensitivity [Unknown]
